FAERS Safety Report 26077855 (Version 1)
Quarter: 2025Q4

REPORT INFORMATION
  Report Type: Spontaneous
  Country: US (occurrence: US)
  Receive Date: 20251122
  Receipt Date: 20251122
  Transmission Date: 20260117
  Serious: No
  Sender: MDD OPERATIONS
  Company Number: US-MDD US Operations-MDD202509-003782

PATIENT
  Age: 74 Year
  Sex: Female

DRUGS (3)
  1. ONAPGO [Suspect]
     Active Substance: APOMORPHINE HYDROCHLORIDE
     Indication: Parkinson^s disease
     Dates: end: 20250912
  2. ONAPGO [Suspect]
     Active Substance: APOMORPHINE HYDROCHLORIDE
     Indication: Dyskinesia
     Dosage: STRENGTH: 98MG/20ML (4.9MG/ML) FOR 16 HOURS OR LESS EACH DAY CONTINUOUS DOSE (MAXIMUM 6MG PER HOUR O
     Route: 058
     Dates: start: 202508, end: 202510
  3. ONAPGO [Suspect]
     Active Substance: APOMORPHINE HYDROCHLORIDE
     Indication: On and off phenomenon

REACTIONS (3)
  - Feeling abnormal [Unknown]
  - Dizziness [Recovered/Resolved]
  - Dyskinesia [Recovered/Resolved]
